FAERS Safety Report 11946389 (Version 1)
Quarter: 2016Q1

REPORT INFORMATION
  Report Type: Spontaneous
  Country: US (occurrence: US)
  Receive Date: 20160125
  Receipt Date: 20160125
  Transmission Date: 20160526
  Serious: No
  Sender: FDA-Public Use
  Company Number: US-JNJFOC-20151223919

PATIENT
  Sex: Female

DRUGS (2)
  1. WOMENS ROGAINE UNSCENTED [Suspect]
     Active Substance: MINOXIDIL
     Route: 061
  2. WOMENS ROGAINE UNSCENTED [Suspect]
     Active Substance: MINOXIDIL
     Indication: ALOPECIA
     Dosage: AS MUCH AS NEED THAN 1/2 CAPFUL WHICH WILL ENOUGH TO COVER 3 PARTS ON HEAD.
     Route: 061

REACTIONS (5)
  - Product formulation issue [Unknown]
  - Drug administered at inappropriate site [Unknown]
  - Product physical consistency issue [Unknown]
  - Extra dose administered [Unknown]
  - Off label use [Unknown]
